FAERS Safety Report 9255074 (Version 1)
Quarter: 2013Q1

REPORT INFORMATION
  Report Type: Spontaneous
  Country: US (occurrence: None)
  Receive Date: 20121212
  Receipt Date: 20121212
  Transmission Date: 20140127
  Serious: No
  Sender: FDA-Public Use
  Company Number: 1209USA000133

PATIENT
  Sex: Male

DRUGS (2)
  1. VICTRELIS (BOCEPREVIR) CAPSULE, 200MG [Suspect]
     Indication: HEPATITIS C
     Dosage: 800MG, TID, ORAL
     Route: 048
     Dates: start: 201208, end: 20120824
  2. PEGINTRON (PEGINTERFERON ALDA-2B [Suspect]

REACTIONS (1)
  - Anaemia [None]
